FAERS Safety Report 6376119-5 (Version None)
Quarter: 2009Q3

REPORT INFORMATION
  Report Type: 
  Country: None (occurrence: None)
  Receive Date: 20090921
  Receipt Date: 20090904
  Transmission Date: 20100115
  Serious: Yes (Life-Threatening, Hospitalization, Other)
  Sender: FDA-Public Use
  Company Number: 2008SP015078

PATIENT
  Age: 54 Year
  Sex: Male

DRUGS (4)
  1. PEG-INTRON [Suspect]
     Indication: HEPATITIS C
     Dates: start: 20061027, end: 20070911
  2. REBETOL [Suspect]
     Indication: HEPATITIS C
     Dates: start: 20061027, end: 20070911
  3. PEGASYS [Concomitant]
  4. COPEGUS [Concomitant]

REACTIONS (26)
  - AMNESIA [None]
  - ARTERIOSCLEROSIS [None]
  - ARTHRALGIA [None]
  - BACK PAIN [None]
  - BALANCE DISORDER [None]
  - BLOOD PRESSURE DIASTOLIC INCREASED [None]
  - BRAIN INJURY [None]
  - CENTRAL NERVOUS SYSTEM LESION [None]
  - CEREBRAL ISCHAEMIA [None]
  - DEPRESSION [None]
  - DIARRHOEA [None]
  - EAR INFECTION [None]
  - HAEMORRHOIDAL HAEMORRHAGE [None]
  - HEADACHE [None]
  - MOOD ALTERED [None]
  - NAUSEA [None]
  - NEUROPATHY PERIPHERAL [None]
  - PHARYNGITIS [None]
  - PYREXIA [None]
  - RAPID EYE MOVEMENTS SLEEP ABNORMAL [None]
  - SLEEP DISORDER [None]
  - SOMNOLENCE [None]
  - SPINAL OSTEOARTHRITIS [None]
  - SYNCOPE [None]
  - VERTIGO [None]
  - VOMITING [None]
